FAERS Safety Report 15404355 (Version 1)
Quarter: 2018Q3

REPORT INFORMATION
  Report Type: Spontaneous
  Country: US (occurrence: US)
  Receive Date: 20180919
  Receipt Date: 20180919
  Transmission Date: 20181010
  Serious: No
  Sender: FDA-Public Use
  Company Number: US-FRESENIUS KABI-FK201809618

PATIENT
  Age: 21 Year
  Sex: Female
  Weight: 41.7 kg

DRUGS (4)
  1. FAMOTIDINE. [Concomitant]
     Active Substance: FAMOTIDINE
     Indication: PRODUCT USED FOR UNKNOWN INDICATION
     Dosage: UNKNOWN
     Route: 065
  2. SODIUM CHLORIDE. [Suspect]
     Active Substance: SODIUM CHLORIDE
     Indication: MAST CELL ACTIVATION SYNDROME
     Dosage: 693 ML OF NORMAL SALINE MIXED WITH 7 ML (350 MG) OF DIPHENHYDRAMINE, FINAL CONCENTRATION 0.5 MG PER
     Route: 042
     Dates: start: 20180906, end: 20180906
  3. HYDROCORTISONE SODIUM SUCCINATE [Concomitant]
     Active Substance: HYDROCORTISONE SODIUM SUCCINATE
     Indication: PRODUCT USED FOR UNKNOWN INDICATION
     Dosage: UNKNOWN
     Route: 065
  4. DIPHENHYDRAMINE HYDROCHLORIDE INJECTION, USP [Suspect]
     Active Substance: DIPHENHYDRAMINE HYDROCHLORIDE
     Indication: MAST CELL ACTIVATION SYNDROME
     Dosage: 350 MG (7ML) MIXED WITH 693 ML NORMAL SALINE, FINAL CONCENTRATION 0.5 MG PER ML, RUNNING AT 11 MG PE
     Route: 042
     Dates: start: 20180906, end: 20180906

REACTIONS (3)
  - Flushing [Recovered/Resolved]
  - Swelling [Recovered/Resolved]
  - Pruritus generalised [Recovered/Resolved]

NARRATIVE: CASE EVENT DATE: 20180906
